FAERS Safety Report 15042325 (Version 1)
Quarter: 2018Q2

REPORT INFORMATION
  Report Type: Spontaneous
  Country: US (occurrence: US)
  Receive Date: 20180621
  Receipt Date: 20180621
  Transmission Date: 20180711
  Serious: No
  Sender: FDA-Public Use
  Company Number: US-TEVA-2018-US-908330

PATIENT

DRUGS (3)
  1. TEMAZEPAM. [Suspect]
     Active Substance: TEMAZEPAM
     Route: 065
  2. ZOLPIDEM [Suspect]
     Active Substance: ZOLPIDEM\ZOLPIDEM TARTRATE
     Route: 065
  3. CLONAZEPAM. [Suspect]
     Active Substance: CLONAZEPAM
     Route: 065

REACTIONS (3)
  - Tachyphylaxis [Unknown]
  - Feeling hot [Unknown]
  - Drug ineffective [Unknown]
